FAERS Safety Report 6616596-5 (Version None)
Quarter: 2010Q1

REPORT INFORMATION
  Report Type: 
  Country: None (occurrence: None)
  Receive Date: 20100305
  Receipt Date: 20100226
  Transmission Date: 20100710
  Serious: Yes (Hospitalization)
  Sender: FDA-Public Use
  Company Number: PHHO2009JP06183

PATIENT
  Sex: Female
  Weight: 55 kg

DRUGS (11)
  1. AMN107 AMN+CAP [Suspect]
     Indication: GASTROINTESTINAL STROMAL TUMOUR
     Dosage: 400 MG, BID
     Route: 048
     Dates: start: 20090414
  2. THYRADIN S [Concomitant]
     Indication: HYPOTHYROIDISM
     Dosage: UNK
     Dates: end: 20090130
  3. ALDACTONE [Concomitant]
     Indication: ASCITES
     Dosage: UNK
     Dates: start: 20090116, end: 20090413
  4. PREDONINE [Concomitant]
     Indication: RASH
     Dosage: UNK
     Dates: start: 20090116, end: 20090413
  5. PARIET [Concomitant]
     Indication: PROPHYLAXIS
     Dosage: UNK
     Dates: start: 20090116, end: 20090413
  6. LASIX [Concomitant]
     Indication: ASCITES
     Dosage: UNK
     Dates: start: 20081212, end: 20090918
  7. LASIX [Concomitant]
     Indication: OEDEMA
  8. ADALAT CC [Concomitant]
     Indication: HYPERTENSION
     Dosage: UNK
     Dates: start: 20080930, end: 20090413
  9. ENALAPRIL MALEATE [Concomitant]
     Indication: HYPERTENSION
     Dosage: UNK
     Dates: start: 20080426, end: 20090413
  10. LOXOPROFEN SODIUM [Concomitant]
     Indication: MYALGIA
     Dosage: UNK
     Dates: start: 20090417, end: 20090428
  11. MUCOSTA [Concomitant]
     Indication: PROPHYLAXIS
     Dosage: UNK
     Dates: start: 20090417, end: 20090428

REACTIONS (4)
  - BLOOD CALCIUM DECREASED [None]
  - CHEST PAIN [None]
  - ELECTROCARDIOGRAM QT PROLONGED [None]
  - VOMITING [None]
